FAERS Safety Report 9348174 (Version 1)
Quarter: 2013Q2

REPORT INFORMATION
  Report Type: Spontaneous
  Country: US (occurrence: None)
  Receive Date: 20130612
  Receipt Date: 20130612
  Transmission Date: 20140414
  Serious: Yes (Hospitalization)
  Sender: FDA-Public Use
  Company Number: None

PATIENT
  Age: 81 Year
  Sex: Male

DRUGS (1)
  1. DABIGATRAN [Suspect]
     Indication: ATRIAL FIBRILLATION
     Dates: start: 20130101, end: 20130529

REACTIONS (6)
  - Cerebrovascular accident [None]
  - Faeces discoloured [None]
  - Dizziness [None]
  - Fatigue [None]
  - Haemorrhage [None]
  - Haematocrit decreased [None]
